FAERS Safety Report 15396278 (Version 1)
Quarter: 2018Q3

REPORT INFORMATION
  Report Type: Other
  Country: US (occurrence: US)
  Receive Date: 20180918
  Receipt Date: 20180918
  Transmission Date: 20181010
  Serious: Yes (Death)
  Sender: FDA-Public Use
  Company Number: US-LEADIANT BIOSCIENCES INC-2018STPI000054

PATIENT
  Age: 28 Year
  Sex: Male

DRUGS (7)
  1. OXYCODONE [Concomitant]
     Active Substance: OXYCODONE
  2. COLACE [Concomitant]
     Active Substance: DOCUSATE SODIUM
  3. PAROXETINE. [Concomitant]
     Active Substance: PAROXETINE
  4. MATULANE [Suspect]
     Active Substance: PROCARBAZINE HYDROCHLORIDE
     Indication: HODGKIN^S DISEASE
     Dosage: 150 MG, QD
     Route: 048
     Dates: start: 20170804
  5. ALPRAZOLAM. [Concomitant]
     Active Substance: ALPRAZOLAM
  6. IBUPROFEN. [Concomitant]
     Active Substance: IBUPROFEN
  7. METHOCARBAMOL. [Concomitant]
     Active Substance: METHOCARBAMOL

REACTIONS (1)
  - Overdose [Fatal]

NARRATIVE: CASE EVENT DATE: 20180116
